FAERS Safety Report 4709207-7 (Version None)
Quarter: 2005Q3

REPORT INFORMATION
  Report Type: 
  Country: None (occurrence: None)
  Receive Date: 20050708
  Receipt Date: 20050627
  Transmission Date: 20060218
  Serious: Yes (Other)
  Sender: FDA-Public Use
  Company Number: GB-NOVOPROD-245187

PATIENT
  Sex: Male

DRUGS (1)
  1. NOVOMIX? 30 FLEXPEN? [Suspect]
     Indication: DIABETES MELLITUS
     Dosage: 15 IU, BID

REACTIONS (2)
  - CONVULSION [None]
  - STATUS EPILEPTICUS [None]
